FAERS Safety Report 8450486-0 (Version None)
Quarter: 2012Q2

REPORT INFORMATION
  Report Type: 
  Country: None (occurrence: None)
  Receive Date: 20120620
  Receipt Date: 20120614
  Transmission Date: 20120825
  Serious: Yes (Death)
  Sender: FDA-Public Use
  Company Number: JP-ASTELLAS-2012JP002456

PATIENT
  Sex: Female
  Weight: 35 kg

DRUGS (20)
  1. FUNGUARD [Suspect]
     Indication: FUNGAEMIA
     Dosage: 75 MG, UID/QD
     Route: 041
     Dates: start: 20120316, end: 20120324
  2. SOLDACTONE [Concomitant]
     Indication: PLEURAL EFFUSION
     Dosage: 200 MG, UID/QD
     Route: 042
     Dates: start: 20120308, end: 20120324
  3. NEOPAREN 2 [Concomitant]
     Dosage: 1.5 L, UID/QD
     Route: 041
     Dates: start: 20120313, end: 20120316
  4. MAGMITT [Concomitant]
     Dosage: 990 MG, UID/QD
     Route: 048
     Dates: start: 20120212, end: 20120303
  5. KLARICID                           /00984601/ [Concomitant]
     Dosage: 200 MG, BID
     Route: 048
     Dates: start: 20120219, end: 20120302
  6. MAGMITT [Concomitant]
     Dosage: 990 MG, UID/QD
     Route: 048
     Dates: start: 20120310, end: 20120314
  7. TPN ELECTROLYTES IN PLASTIC CONTAINER [Concomitant]
     Indication: MALNUTRITION
     Dosage: 500 ML, UID/QD
     Route: 041
     Dates: start: 20120229, end: 20120310
  8. NEOPAREN 1 [Concomitant]
     Dosage: 1.5 L, UID/QD
     Route: 041
     Dates: start: 20120311, end: 20120312
  9. ASPARA K [Concomitant]
     Dosage: 1.8 G, TID
     Route: 048
     Dates: start: 20120229, end: 20120302
  10. PICILLIBACTA [Concomitant]
     Indication: PNEUMONIA
     Dosage: 3 G, BID
     Route: 041
     Dates: start: 20120303, end: 20120306
  11. BENZALIN                           /00036201/ [Concomitant]
     Dosage: 5 MG, UID/QD
     Route: 048
     Dates: start: 20120310, end: 20120314
  12. SOLDACTONE [Concomitant]
     Indication: ASCITES
  13. NEOPAREN 2 [Concomitant]
     Dosage: 1 L, UID/QD
     Route: 041
     Dates: start: 20120317, end: 20120324
  14. HIRNAMIN                           /00038601/ [Concomitant]
     Dosage: 5 MG, UID/QD
     Route: 048
     Dates: start: 20120212, end: 20120303
  15. BENZALIN                           /00036201/ [Concomitant]
     Dosage: 5 MG, UID/QD
     Route: 048
     Dates: start: 20120212, end: 20120229
  16. CEFTRIAXONE [Concomitant]
     Indication: PANCREATITIS
     Dosage: 1 G, UID/QD
     Route: 041
     Dates: start: 20120313, end: 20120316
  17. CEFTRIAXONE [Concomitant]
     Indication: URINARY TRACT INFECTION
  18. RISPERDAL [Concomitant]
     Dosage: 1 MG, UID/QD
     Route: 048
     Dates: start: 20120212, end: 20120229
  19. RISPERDAL [Concomitant]
     Dosage: 1 MG, UID/QD
     Route: 048
     Dates: start: 20120310, end: 20120314
  20. HIRNAMIN                           /00038601/ [Concomitant]
     Dosage: 5 MG, UID/QD
     Route: 048
     Dates: start: 20120310, end: 20120314

REACTIONS (1)
  - PLATELET COUNT DECREASED [None]
